FAERS Safety Report 14308831 (Version 1)
Quarter: 2017Q4

REPORT INFORMATION
  Report Type: Spontaneous
  Country: US (occurrence: US)
  Receive Date: 20171220
  Receipt Date: 20171220
  Transmission Date: 20180321
  Serious: Yes (Other)
  Sender: FDA-Public Use
  Company Number: US-BAYER-2017-243357

PATIENT
  Age: 78 Year
  Sex: Male

DRUGS (3)
  1. OCTREOTIDE. [Concomitant]
     Active Substance: OCTREOTIDE
  2. WARFARIN [Suspect]
     Active Substance: WARFARIN
  3. ACETYLSALICYLIC ACID({=100 MG) [Suspect]
     Active Substance: ASPIRIN

REACTIONS (3)
  - Contraindicated product administered [None]
  - Gastrointestinal haemorrhage [None]
  - Labelled drug-drug interaction medication error [None]
